FAERS Safety Report 13731561 (Version 2)
Quarter: 2017Q3

REPORT INFORMATION
  Report Type: Spontaneous
  Country: US (occurrence: US)
  Receive Date: 20170707
  Receipt Date: 20170721
  Transmission Date: 20171127
  Serious: Yes (Hospitalization, Other)
  Sender: FDA-Public Use
  Company Number: US-ELI_LILLY_AND_COMPANY-US201706013316

PATIENT
  Sex: Male

DRUGS (3)
  1. CLONAZEPAM. [Concomitant]
     Active Substance: CLONAZEPAM
  2. HUMALOG [Suspect]
     Active Substance: INSULIN LISPRO
     Indication: TYPE 1 DIABETES MELLITUS
     Dosage: UNK, UNKNOWN
     Dates: start: 2006
  3. METOPROLOL. [Concomitant]
     Active Substance: METOPROLOL

REACTIONS (8)
  - Bipolar disorder [Not Recovered/Not Resolved]
  - Diabetic ketoacidosis [Unknown]
  - Malaise [Recovered/Resolved]
  - Blood glucose abnormal [Recovered/Resolved]
  - Vomiting [Recovered/Resolved]
  - Mobility decreased [Unknown]
  - Chapped lips [Unknown]
  - Nausea [Unknown]

NARRATIVE: CASE EVENT DATE: 2015
